FAERS Safety Report 17610499 (Version 1)
Quarter: 2020Q2

REPORT INFORMATION
  Report Type: Spontaneous
  Country: US (occurrence: US)
  Receive Date: 20200401
  Receipt Date: 20200401
  Transmission Date: 20200713
  Serious: No
  Sender: FDA-Public Use
  Company Number: None

PATIENT
  Age: 44 Year
  Sex: Female
  Weight: 50.4 kg

DRUGS (4)
  1. NYSTATIN ORAL SUSPENSION [Suspect]
     Active Substance: NYSTATIN
     Indication: CANDIDA INFECTION
     Dosage: ?          QUANTITY:1 TEASPOON(S);?
     Route: 048
  2. MULTI VITAMINS [Concomitant]
     Active Substance: VITAMINS
  3. LORAZEPAM. [Concomitant]
     Active Substance: LORAZEPAM
  4. TYLENOL [Concomitant]
     Active Substance: ACETAMINOPHEN

REACTIONS (1)
  - Headache [None]

NARRATIVE: CASE EVENT DATE: 20200328
